FAERS Safety Report 21226572 (Version 5)
Quarter: 2022Q4

REPORT INFORMATION
  Report Type: Report from Study
  Country: CN (occurrence: None)
  Receive Date: 20220818
  Receipt Date: 20221031
  Transmission Date: 20230113
  Serious: Yes (Hospitalization)
  Sender: FDA-Public Use
  Company Number: CN-ROCHE-3157197

PATIENT
  Age: 56 Year
  Sex: Male
  Weight: 78 kg

DRUGS (10)
  1. VEMURAFENIB [Suspect]
     Active Substance: VEMURAFENIB
     Indication: Colorectal cancer metastatic
     Dosage: ON 31/JUL/2022, PATIENT HAD LAST DOSE OF VEMURAFENIB 720 MG
     Route: 048
     Dates: start: 20220617, end: 20220730
  2. VEMURAFENIB [Suspect]
     Active Substance: VEMURAFENIB
     Route: 048
     Dates: start: 20220902
  3. METFORMIN [Concomitant]
     Active Substance: METFORMIN HYDROCHLORIDE
     Indication: Diabetes mellitus
  4. REPAGLINIDE [Concomitant]
     Active Substance: REPAGLINIDE
     Indication: Diabetes mellitus
     Route: 048
  5. PREDNISONE ACETATE [Concomitant]
     Active Substance: PREDNISONE ACETATE
  6. LORATADINE [Concomitant]
     Active Substance: LORATADINE
     Dates: start: 20220824
  7. CETIRIZINE [Concomitant]
     Active Substance: CETIRIZINE HYDROCHLORIDE
     Dates: start: 20220824
  8. FISH OIL\OMEGA-3 FATTY ACIDS [Concomitant]
     Active Substance: FISH OIL\OMEGA-3 FATTY ACIDS
     Route: 042
     Dates: start: 20220929
  9. METHYLPREDNISOLONE SODIUM SUCCINATE [Concomitant]
     Active Substance: METHYLPREDNISOLONE SODIUM SUCCINATE
     Route: 042
     Dates: start: 20221002, end: 20221004
  10. METHYLPREDNISOLONE SODIUM SUCCINATE [Concomitant]
     Active Substance: METHYLPREDNISOLONE SODIUM SUCCINATE
     Route: 042
     Dates: start: 20221005, end: 20221008

REACTIONS (2)
  - Dyspnoea [Not Recovered/Not Resolved]
  - Systemic inflammatory response syndrome [Recovering/Resolving]

NARRATIVE: CASE EVENT DATE: 20220808
